FAERS Safety Report 20985776 (Version 1)
Quarter: 2022Q2

REPORT INFORMATION
  Report Type: Spontaneous
  Country: US (occurrence: None)
  Receive Date: 20220617
  Receipt Date: 20220617
  Transmission Date: 20220721
  Serious: Yes (Disabling)
  Sender: FDA-Public Use
  Company Number: None

PATIENT
  Age: 64 Year
  Sex: Female
  Weight: 153 kg

DRUGS (10)
  1. PAXLOVID [Suspect]
     Active Substance: NIRMATRELVIR\RITONAVIR
  2. PROPRANOLOL HYDROCHLORIDE [Concomitant]
     Active Substance: PROPRANOLOL HYDROCHLORIDE
  3. CYMBALTA [Concomitant]
     Active Substance: DULOXETINE HYDROCHLORIDE
  4. CELEXA [Concomitant]
     Active Substance: CITALOPRAM HYDROBROMIDE
  5. HYDROCHLOROTHIAZIDE [Concomitant]
     Active Substance: HYDROCHLOROTHIAZIDE
  6. TYLENOL WITH CODEINE [Concomitant]
  7. LOSARTAN [Concomitant]
     Active Substance: LOSARTAN
  8. ZINC [Concomitant]
     Active Substance: ZINC
  9. Vitamin d [Concomitant]
  10. POTASSIUM [Concomitant]
     Active Substance: POTASSIUM

REACTIONS (3)
  - Diarrhoea [None]
  - Abdominal discomfort [None]
  - Abdominal discomfort [None]

NARRATIVE: CASE EVENT DATE: 20220611
